FAERS Safety Report 4536734-8 (Version None)
Quarter: 2004Q4

REPORT INFORMATION
  Report Type: 
  Country: None (occurrence: None)
  Receive Date: 20041223
  Receipt Date: 20041215
  Transmission Date: 20050328
  Serious: Yes (Hospitalization)
  Sender: FDA-Public Use
  Company Number: JP-JNJFOC-20041002834

PATIENT
  Sex: Female

DRUGS (9)
  1. RISPERDAL [Suspect]
     Route: 049
  2. RISPERDAL [Suspect]
     Indication: SCHIZOPHRENIA
     Route: 049
  3. CHLORPROMAZINE HYDROCHLORIDE [Suspect]
     Indication: SCHIZOPHRENIA
     Route: 049
  4. LEVOMEPROMAZINE MALEATE [Suspect]
     Indication: SCHIZOPHRENIA
     Route: 049
  5. CLOSTRIDIUM BUTYRICUM [Concomitant]
  6. ENOPROSTIL [Concomitant]
  7. BROTIZOLAM [Concomitant]
  8. MEXILETINE HYDROCHLORIDE [Concomitant]
     Indication: HYPERTROPHIC CARDIOMYOPATHY
  9. CALCIUM [Concomitant]

REACTIONS (1)
  - PNEUMATOSIS CYSTOIDES INTESTINALIS [None]
